FAERS Safety Report 7045060-7 (Version None)
Quarter: 2010Q3

REPORT INFORMATION
  Report Type: 
  Country: None (occurrence: None)
  Receive Date: 20100929
  Receipt Date: 20100608
  Transmission Date: 20110219
  Serious: No
  Sender: FDA-Public Use
  Company Number: US-WYE-H15578610

PATIENT
  Age: 61 Year
  Sex: Male
  Weight: 86.26 kg

DRUGS (5)
  1. PRISTIQ [Suspect]
     Indication: DEPRESSED MOOD
     Dosage: 50 MG 1X PER 1 DAY, ORAL
     Route: 048
     Dates: start: 20100515
  2. PRISTIQ [Suspect]
     Indication: IRRITABLE BOWEL SYNDROME
     Dosage: 50 MG 1X PER 1 DAY, ORAL
     Route: 048
     Dates: start: 20100515
  3. SYNTHROID [Concomitant]
  4. ACIPHEX [Concomitant]
  5. SIMVASTATIN [Concomitant]

REACTIONS (3)
  - ABDOMINAL DISCOMFORT [None]
  - CONDITION AGGRAVATED [None]
  - DEPRESSED MOOD [None]
